FAERS Safety Report 6436352-0 (Version None)
Quarter: 2009Q4

REPORT INFORMATION
  Report Type: 
  Country: None (occurrence: None)
  Receive Date: 20091111
  Receipt Date: 20091028
  Transmission Date: 20100525
  Serious: Yes (Hospitalization, Other)
  Sender: FDA-Public Use
  Company Number: PHHY2009JP40196

PATIENT
  Sex: Female
  Weight: 47 kg

DRUGS (9)
  1. ZOMETA [Suspect]
     Indication: METASTASES TO BONE
     Dosage: 4MG (PER ADMINISTRATION)
     Route: 042
     Dates: start: 20080701, end: 20090901
  2. PREDONINE [Concomitant]
     Indication: METASTASES TO BONE
     Dosage: 20 MG, UNK
     Route: 048
     Dates: start: 20080701, end: 20090901
  3. MEVALOTIN [Concomitant]
     Dosage: 10 MG, UNK
     Route: 048
  4. NORVASC [Concomitant]
     Dosage: 5 MG, UNK
     Route: 048
  5. DIOVAN [Concomitant]
     Dosage: 80 MG, UNK
     Route: 048
  6. RIZABEN [Concomitant]
     Dosage: 300 MG, UNK
     Route: 048
  7. OPALMON [Concomitant]
     Dosage: 3 DF, UNK
     Route: 048
  8. PARIET [Concomitant]
     Dosage: 30 MG, UNK
     Route: 048
  9. ALFAROL [Concomitant]
     Dosage: 1 UG, UNK
     Route: 048

REACTIONS (9)
  - BONE DISORDER [None]
  - EOSINOPHIL COUNT DECREASED [None]
  - ERYTHEMA [None]
  - NEUTROPHIL COUNT INCREASED [None]
  - OSTEOMYELITIS [None]
  - OSTEONECROSIS [None]
  - PAIN [None]
  - PLATELET COUNT INCREASED [None]
  - SWELLING [None]
